FAERS Safety Report 9586608 (Version 6)
Quarter: 2014Q1

REPORT INFORMATION
  Report Type: Spontaneous
  Country: US (occurrence: US)
  Receive Date: 20131003
  Receipt Date: 20140205
  Transmission Date: 20141002
  Serious: Yes (Hospitalization, Other)
  Sender: FDA-Public Use
  Company Number: US-009507513-1206USA02680

PATIENT
  Sex: Male
  Weight: 91.16 kg

DRUGS (16)
  1. FOSAMAX [Suspect]
     Indication: OSTEOPENIA
     Dosage: 70 MG, QW
     Route: 048
     Dates: start: 2007, end: 201006
  2. FOSAMAX [Suspect]
     Indication: OSTEOPOROSIS
     Dosage: 10 MG, QW
     Route: 048
     Dates: start: 20100614
  3. ALENDRONATE SODIUM [Suspect]
     Indication: OSTEOPENIA
     Dosage: 70 MG, QW
     Route: 048
     Dates: start: 2007, end: 2010
  4. ACTONEL [Concomitant]
     Indication: OSTEOPENIA
     Route: 048
     Dates: start: 2005, end: 2007
  5. HORMONES (UNSPECIFIED) [Concomitant]
     Dosage: UNK
     Dates: start: 1993
  6. ANDROGEL [Concomitant]
     Indication: HYPOGONADISM
     Dosage: 1%-3 SQUIRTS DAILY
     Route: 061
  7. DIOVAN [Concomitant]
     Indication: HYPERTENSION
  8. CARVEDILOL [Concomitant]
     Indication: HYPERTENSION
  9. THIAMINE [Concomitant]
     Indication: ALCOHOL USE
     Dosage: UNK
     Dates: start: 20100610
  10. FOLIC ACID [Concomitant]
     Indication: ALCOHOL USE
     Dosage: UNK
     Dates: start: 20100610
  11. PNEUMOCOCCAL VACCINE (UNSPECIFIED) [Concomitant]
     Dates: start: 20090923, end: 20090923
  12. INFLUENZA VIRUS VACCINE (UNSPECIFIED) [Concomitant]
     Dosage: UNK
     Dates: start: 20071024
  13. INFLUENZA VIRUS VACCINE (UNSPECIFIED) [Concomitant]
     Dosage: UNK
     Dates: start: 20081020
  14. INFLUENZA VIRUS VACCINE (UNSPECIFIED) [Concomitant]
     Dosage: UNK
     Dates: start: 20090923
  15. ZOSTAVAX [Concomitant]
     Dates: start: 20090730, end: 20090730
  16. MICARDIS [Concomitant]
     Indication: HYPERTENSION
     Dosage: 40 MG, QD

REACTIONS (57)
  - Anticoagulation drug level below therapeutic [Recovering/Resolving]
  - Inappropriate schedule of drug administration [Unknown]
  - Bronchitis [Unknown]
  - Nerve compression [Recovering/Resolving]
  - Osteoarthritis [Unknown]
  - Fatigue [Unknown]
  - Haematoma [Unknown]
  - Fall [Unknown]
  - Pollakiuria [Unknown]
  - Polyuria [Unknown]
  - Muscular weakness [Unknown]
  - Memory impairment [Unknown]
  - Prostatic specific antigen increased [Unknown]
  - Cough [Not Recovered/Not Resolved]
  - Venous insufficiency [Not Recovered/Not Resolved]
  - Blood testosterone increased [Unknown]
  - Incorrect drug administration duration [Unknown]
  - Oropharyngeal pain [Unknown]
  - Balance disorder [Unknown]
  - Musculoskeletal discomfort [Unknown]
  - Oedema peripheral [Unknown]
  - Muscle spasms [Unknown]
  - Drug ineffective [Unknown]
  - Rash [Unknown]
  - Drug ineffective [Unknown]
  - Pain in extremity [Unknown]
  - Femur fracture [Recovered/Resolved]
  - Intramedullary rod insertion [Unknown]
  - Anaemia postoperative [Unknown]
  - Deafness [Unknown]
  - Cerebrovascular accident [Recovered/Resolved with Sequelae]
  - Cardiac pacemaker insertion [Unknown]
  - Implantable defibrillator insertion [Unknown]
  - Low turnover osteopathy [Unknown]
  - Atrial fibrillation [Unknown]
  - Cardiomyopathy [Unknown]
  - Transient ischaemic attack [Unknown]
  - Cataract [Unknown]
  - Upper respiratory tract infection [Recovering/Resolving]
  - Hepatic steatosis [Unknown]
  - Arthropathy [Unknown]
  - Benign neoplasm of thyroid gland [Unknown]
  - Goitre [Unknown]
  - Spinal osteoarthritis [Unknown]
  - Pain [Not Recovered/Not Resolved]
  - Chronic obstructive pulmonary disease [Not Recovered/Not Resolved]
  - Fall [Unknown]
  - Traumatic haematoma [Recovered/Resolved]
  - Gout [Unknown]
  - Insomnia [Unknown]
  - Depression [Unknown]
  - Peripheral vascular disorder [Unknown]
  - Medical device removal [Unknown]
  - Bronchial hyperreactivity [Unknown]
  - Leukocytosis [Unknown]
  - Hyperglycaemia [Unknown]
  - Cardiac failure congestive [Unknown]
